FAERS Safety Report 7395395-3 (Version None)
Quarter: 2011Q2

REPORT INFORMATION
  Report Type: 
  Country: None (occurrence: None)
  Receive Date: 20110405
  Receipt Date: 20110323
  Transmission Date: 20111010
  Serious: Yes (Other)
  Sender: FDA-Public Use
  Company Number: PHHY2010JP87815

PATIENT
  Age: 77 Year
  Sex: Female

DRUGS (1)
  1. PROCAINAMIDE [Suspect]
     Indication: ATRIAL FIBRILLATION
     Dosage: 400 MG, UNK
     Route: 042

REACTIONS (8)
  - ELECTROCARDIOGRAM QT PROLONGED [None]
  - ELECTROCARDIOGRAM REPOLARISATION ABNORMALITY [None]
  - TORSADE DE POINTES [None]
  - ARRHYTHMIA [None]
  - SYNCOPE [None]
  - VENTRICULAR TACHYCARDIA [None]
  - ELECTROCARDIOGRAM QRS COMPLEX ABNORMAL [None]
  - LOSS OF CONSCIOUSNESS [None]
